FAERS Safety Report 7564593-8 (Version None)
Quarter: 2011Q2

REPORT INFORMATION
  Report Type: 
  Country: None (occurrence: None)
  Receive Date: 20110622
  Receipt Date: 20100805
  Transmission Date: 20111010
  Serious: Yes (Other)
  Sender: FDA-Public Use
  Company Number: US-MYLANLABS-2010S1010886

PATIENT
  Age: 85 Year
  Sex: Female

DRUGS (8)
  1. REMERON [Concomitant]
  2. CLOZAPINE [Suspect]
     Route: 048
  3. NAMENDA [Concomitant]
  4. CLOZAPINE [Suspect]
     Indication: SCHIZOPHRENIA
     Route: 048
     Dates: start: 20090721, end: 20100701
  5. TRAZODONE HCL [Concomitant]
  6. COGENTIN [Concomitant]
  7. DEPAKOTE [Concomitant]
  8. ARICEPT [Concomitant]

REACTIONS (2)
  - GRANULOCYTOPENIA [None]
  - LEUKOPENIA [None]
